FAERS Safety Report 17460252 (Version 2)
Quarter: 2020Q2

REPORT INFORMATION
  Report Type: Spontaneous
  Country: US (occurrence: US)
  Receive Date: 20200226
  Receipt Date: 20200403
  Transmission Date: 20200713
  Serious: Yes (Other)
  Sender: FDA-Public Use
  Company Number: US-PFIZER INC-2020080907

PATIENT

DRUGS (1)
  1. DEPO-TESTOSTERONE [Suspect]
     Active Substance: TESTOSTERONE CYPIONATE
     Dosage: UNK [200MG/ML; 10ML MULTI-DOSE VIAL, 2 VIALS IN QUESTION]

REACTIONS (3)
  - Drug ineffective [Unknown]
  - Product deposit [Unknown]
  - Product colour issue [Unknown]
